FAERS Safety Report 16832884 (Version 1)
Quarter: 2019Q3

REPORT INFORMATION
  Report Type: Report from Study
  Country: None (occurrence: AR)
  Receive Date: 20190920
  Receipt Date: 20190920
  Transmission Date: 20191005
  Serious: Yes (Other)
  Sender: FDA-Public Use
  Company Number: AR-ABBVIE-19K-007-2933019-00

PATIENT
  Age: 48 Year
  Sex: Female

DRUGS (1)
  1. HUMIRA [Suspect]
     Active Substance: ADALIMUMAB
     Indication: RHEUMATOID ARTHRITIS
     Route: 058
     Dates: start: 20150730

REACTIONS (5)
  - Tonsillitis [Recovered/Resolved]
  - Pleural effusion [Recovered/Resolved]
  - Joint swelling [Recovering/Resolving]
  - Synovial cyst [Recovered/Resolved]
  - Lung neoplasm [Recovered/Resolved]

NARRATIVE: CASE EVENT DATE: 201810
